FAERS Safety Report 5520378-5 (Version None)
Quarter: 2007Q4

REPORT INFORMATION
  Report Type: 
  Country: None (occurrence: None)
  Receive Date: 20071116
  Receipt Date: 20071116
  Transmission Date: 20080405
  Serious: No
  Sender: FDA-Public Use
  Company Number: None

PATIENT
  Age: 58 Year
  Sex: Female
  Weight: 76.2043 kg

DRUGS (5)
  1. PROVENTIL-HFA [Suspect]
     Indication: BRONCHITIS
     Dosage: 2 PUFFS 3-4 HRS AS NEEDED ORAL INHALATION
     Route: 048
     Dates: start: 20071015, end: 20071021
  2. PROVENTIL-HFA [Suspect]
     Indication: CHRONIC OBSTRUCTIVE PULMONARY DISEASE
     Dosage: 2 PUFFS 3-4 HRS AS NEEDED ORAL INHALATION
     Route: 048
     Dates: start: 20071015, end: 20071021
  3. PROVENTIL-HFA [Suspect]
  4. ATROVENT HFA [Concomitant]
  5. HYDROCHLOROTHIAZIDE [Concomitant]

REACTIONS (6)
  - ASTHENIA [None]
  - CHEST DISCOMFORT [None]
  - DIZZINESS [None]
  - DRUG EFFECT DECREASED [None]
  - PALPITATIONS [None]
  - PHARMACEUTICAL PRODUCT COMPLAINT [None]
